FAERS Safety Report 19598387 (Version 2)
Quarter: 2021Q3

REPORT INFORMATION
  Report Type: Spontaneous
  Country: US (occurrence: US)
  Receive Date: 20210723
  Receipt Date: 20210830
  Transmission Date: 20211014
  Serious: No
  Sender: FDA-Public Use
  Company Number: US-ASTRAZENECA-2021A558175

PATIENT
  Age: 22870 Day
  Sex: Female

DRUGS (1)
  1. BYDUREON BCISE [Suspect]
     Active Substance: EXENATIDE
     Indication: BLOOD GLUCOSE ABNORMAL
     Route: 058

REACTIONS (7)
  - Injection site indentation [Unknown]
  - Device leakage [Unknown]
  - Eye disorder [Unknown]
  - Incorrect dose administered by device [Unknown]
  - Hypoacusis [Unknown]
  - Injection site extravasation [Unknown]
  - Blood glucose increased [Unknown]

NARRATIVE: CASE EVENT DATE: 20210623
